FAERS Safety Report 11434377 (Version 1)
Quarter: 2015Q3

REPORT INFORMATION
  Report Type: Spontaneous
  Country: US (occurrence: None)
  Receive Date: 20150828
  Receipt Date: 20150828
  Transmission Date: 20151125
  Serious: No
  Sender: FDA-Public Use
  Company Number: None

PATIENT
  Age: 33 Year
  Sex: Female
  Weight: 45.36 kg

DRUGS (6)
  1. ZYRTEC [Concomitant]
     Active Substance: CETIRIZINE HYDROCHLORIDE
  2. FLUTICASONE [Suspect]
     Active Substance: FLUTICASONE\FLUTICASONE PROPIONATE
     Indication: RHINITIS
     Dosage: 1 SPRAY
     Route: 045
     Dates: start: 20150601, end: 20150827
  3. FLUTICASONE [Concomitant]
     Active Substance: FLUTICASONE\FLUTICASONE PROPIONATE
  4. LYSINE [Concomitant]
     Active Substance: LYSINE
  5. ALBUTEROL. [Concomitant]
     Active Substance: ALBUTEROL
  6. FLUTICASONE [Suspect]
     Active Substance: FLUTICASONE\FLUTICASONE PROPIONATE
     Indication: MULTIPLE ALLERGIES
     Dosage: 1 SPRAY
     Route: 045
     Dates: start: 20150601, end: 20150827

REACTIONS (4)
  - Dizziness [None]
  - Burning sensation [None]
  - Epistaxis [None]
  - Rhinalgia [None]

NARRATIVE: CASE EVENT DATE: 20150827
